FAERS Safety Report 18337171 (Version 3)
Quarter: 2020Q4

REPORT INFORMATION
  Report Type: Other
  Country: DE (occurrence: DE)
  Receive Date: 20201001
  Receipt Date: 20201222
  Transmission Date: 20210113
  Serious: Yes (Other)
  Sender: FDA-Public Use
  Company Number: DE-ROCHE-2573787

PATIENT
  Age: 30 Year
  Sex: Female

DRUGS (4)
  1. OCREVUS [Suspect]
     Active Substance: OCRELIZUMAB
     Indication: RELAPSING-REMITTING MULTIPLE SCLEROSIS
     Dosage: NEXT DOSE ON 07/NOV/2019
     Route: 042
     Dates: start: 20191024
  2. OCREVUS [Suspect]
     Active Substance: OCRELIZUMAB
     Route: 042
  3. OCREVUS [Suspect]
     Active Substance: OCRELIZUMAB
     Route: 042
     Dates: start: 20201013
  4. L-THYROXINE [Concomitant]
     Active Substance: LEVOTHYROXINE

REACTIONS (8)
  - Vertigo [Recovered/Resolved]
  - Oral herpes [Recovered/Resolved]
  - Visual impairment [Recovered/Resolved]
  - Throat irritation [Recovered/Resolved]
  - Arrhythmia [Recovered/Resolved]
  - Umbilical hernia [Recovered/Resolved]
  - Paraesthesia [Recovered/Resolved]
  - Tremor [Recovered/Resolved]

NARRATIVE: CASE EVENT DATE: 20191024
